FAERS Safety Report 16211156 (Version 1)
Quarter: 2019Q2

REPORT INFORMATION
  Report Type: Spontaneous
  Country: US (occurrence: US)
  Receive Date: 20190417
  Receipt Date: 20190417
  Transmission Date: 20190711
  Serious: Yes (Hospitalization)
  Sender: FDA-Public Use
  Company Number: None

PATIENT
  Sex: Female

DRUGS (13)
  1. CREON [Concomitant]
     Active Substance: PANCRELIPASE AMYLASE\PANCRELIPASE LIPASE\PANCRELIPASE PROTEASE
  2. ADVAIR HFA [Concomitant]
     Active Substance: FLUTICASONE PROPIONATE\SALMETEROL XINAFOATE
  3. AZITHROMYCIN ANHYDROUS. [Concomitant]
     Active Substance: AZITHROMYCIN ANHYDROUS
  4. CETRIZINE [Concomitant]
     Active Substance: CETIRIZINE HYDROCHLORIDE
  5. NOVOLOG [Concomitant]
     Active Substance: INSULIN ASPART
  6. SODIUM CHL [Concomitant]
  7. SMZ/TMP [Concomitant]
     Active Substance: SULFAMETHOXAZOLE\TRIMETHOPRIM
  8. PULMOZYME [Suspect]
     Active Substance: DORNASE ALFA
     Indication: CYSTIC FIBROSIS
     Route: 055
     Dates: start: 20131120
  9. COMPLETE FORMULATION SOFTGEL MULTIVITAMIN [Suspect]
     Active Substance: VITAMINS\ZINC
     Indication: CYSTIC FIBROSIS
     Route: 048
     Dates: start: 20180308
  10. LEVOTHYROXIN [Concomitant]
     Active Substance: LEVOTHYROXINE
  11. MONTELUKAST [Concomitant]
     Active Substance: MONTELUKAST SODIUM
  12. VENTOLIN [Concomitant]
     Active Substance: ALBUTEROL SULFATE
  13. WIXELA INHUB AER [Concomitant]

REACTIONS (2)
  - Product dose omission [None]
  - Gallbladder disorder [None]
